FAERS Safety Report 13988062 (Version 1)
Quarter: 2017Q3

REPORT INFORMATION
  Report Type: Spontaneous
  Country: FR (occurrence: FR)
  Receive Date: 20170919
  Receipt Date: 20170919
  Transmission Date: 20171128
  Serious: Yes (Hospitalization, Other)
  Sender: FDA-Public Use
  Company Number: FR-LEADIANT BIOSCIENCES INC-2017STPI000696

PATIENT
  Age: 41 Year
  Sex: Female

DRUGS (10)
  1. BLEOMYCIN [Concomitant]
     Active Substance: BLEOMYCIN SULFATE
     Indication: HODGKIN^S DISEASE
     Dosage: 20 MG ON DAY 8
     Route: 042
     Dates: start: 20170802
  2. METOCLOPRAMIDE. [Concomitant]
     Active Substance: METOCLOPRAMIDE
     Dosage: 10 MG, TID
     Dates: start: 20170802
  3. LENOGRASTIM [Concomitant]
     Active Substance: LENOGRASTIM
     Dosage: UNK, X1
     Route: 030
     Dates: start: 20170831, end: 20170831
  4. CYCLOPHOSPHAMIDE. [Concomitant]
     Active Substance: CYCLOPHOSPHAMIDE
     Indication: HODGKIN^S DISEASE
     Dosage: 2500 MG, DAY 1 OF CYCLE
     Route: 042
     Dates: start: 20170802
  5. ETOPOSIDE. [Concomitant]
     Active Substance: ETOPOSIDE
     Indication: HODGKIN^S DISEASE
     Dosage: 400 MG ON DAY 1 AND DAY 2
     Route: 042
     Dates: start: 20170802
  6. DOXORUBICIN [Concomitant]
     Active Substance: DOXORUBICIN
     Indication: HODGKIN^S DISEASE
     Dosage: 70 MG ON DAY 1
     Route: 042
     Dates: start: 20170802
  7. MATULANE [Suspect]
     Active Substance: PROCARBAZINE HYDROCHLORIDE
     Indication: HODGKIN^S DISEASE
     Dosage: 200 MG QD ON DAYS 1, 2, 4, 5, 6 AND 7
     Route: 048
     Dates: start: 20170824
  8. VINCRISTINE [Concomitant]
     Active Substance: VINCRISTINE
     Indication: HODGKIN^S DISEASE
     Dosage: 2 MG ON DAY 8HER
     Route: 042
     Dates: start: 20170802
  9. VALACYCLOVIR [Concomitant]
     Active Substance: VALACYCLOVIR HYDROCHLORIDE
     Dosage: 300 MG, TID
     Route: 048
  10. ALPRAZOLAM. [Concomitant]
     Active Substance: ALPRAZOLAM
     Dosage: 0.25 MG, BID
     Route: 048
     Dates: start: 20170824

REACTIONS (3)
  - Toxic skin eruption [Recovered/Resolved]
  - Rash morbilliform [Recovered/Resolved]
  - Anaphylactic reaction [Recovered/Resolved]

NARRATIVE: CASE EVENT DATE: 20170825
